FAERS Safety Report 4758132-4 (Version None)
Quarter: 2005Q3

REPORT INFORMATION
  Report Type: 
  Country: None (occurrence: None)
  Receive Date: 20050829
  Receipt Date: 20050818
  Transmission Date: 20060218
  Serious: Yes (Hospitalization)
  Sender: FDA-Public Use
  Company Number: 2005BH001185

PATIENT
  Age: 74 Year

DRUGS (2)
  1. DIANEAL [Suspect]
     Indication: RENAL FAILURE CHRONIC
     Dosage: 1500 ML; 4X A DAY; IP
     Route: 033
     Dates: start: 20050725, end: 20050817
  2. DIANEAL [Suspect]
     Indication: RENAL FAILURE CHRONIC
     Dosage: 1500 ML; 4X A DAY; IP
     Route: 033
     Dates: start: 20050818

REACTIONS (3)
  - ANOREXIA [None]
  - ASTHENIA [None]
  - BLISTER [None]
